FAERS Safety Report 10428783 (Version 3)
Quarter: 2016Q3

REPORT INFORMATION
  Report Type: Report from Study
  Country: US (occurrence: US)
  Receive Date: 20140904
  Receipt Date: 20160919
  Transmission Date: 20161109
  Serious: Yes (Death)
  Sender: FDA-Public Use
  Company Number: US-ROCHE-1457417

PATIENT
  Age: 72 Year
  Sex: Male

DRUGS (2)
  1. VALCYTE [Suspect]
     Active Substance: VALGANCICLOVIR HYDROCHLORIDE
     Indication: STEM CELL TRANSPLANT
  2. VALCYTE [Suspect]
     Active Substance: VALGANCICLOVIR HYDROCHLORIDE
     Indication: LEUKAEMIA
     Route: 048
     Dates: start: 20131015, end: 20131113

REACTIONS (5)
  - Acute myeloid leukaemia [Fatal]
  - Coronary artery disease [Fatal]
  - Hypertension [Fatal]
  - Cardiac arrest [Fatal]
  - Off label use [Fatal]

NARRATIVE: CASE EVENT DATE: 20140704
